FAERS Safety Report 16214283 (Version 1)
Quarter: 2019Q2

REPORT INFORMATION
  Report Type: Report from Study
  Country: US (occurrence: US)
  Receive Date: 20190418
  Receipt Date: 20190418
  Transmission Date: 20190711
  Serious: Yes (Other)
  Sender: FDA-Public Use
  Company Number: US-MALLINCKRODT-T201803699

PATIENT
  Age: 55 Year
  Sex: Female

DRUGS (5)
  1. REPOSITORY CORTICOTROPIN INJECTION [Suspect]
     Active Substance: CORTICOTROPIN
     Indication: PROTEINURIA
     Dosage: UNK
     Route: 065
  2. KLONOPIN [Concomitant]
     Active Substance: CLONAZEPAM
     Indication: PRODUCT USED FOR UNKNOWN INDICATION
     Dosage: UNK
     Route: 065
  3. REPOSITORY CORTICOTROPIN INJECTION [Suspect]
     Active Substance: CORTICOTROPIN
     Indication: NEPHROTIC SYNDROME
     Dosage: 60 UNITS/0.75 ML, EVERY 3 DAYS / EVERY 72 HOURS
     Route: 058
     Dates: start: 20150803
  4. REPOSITORY CORTICOTROPIN INJECTION [Suspect]
     Active Substance: CORTICOTROPIN
     Dosage: 60 UNITS/0.75 ML, EVERY 3 DAYS / EVERY 72 HOURS
     Route: 058
  5. CELLCEPT [Suspect]
     Active Substance: MYCOPHENOLATE MOFETIL\MYCOPHENOLATE MOFETIL HYDROCHLORIDE
     Indication: PRODUCT USED FOR UNKNOWN INDICATION
     Dosage: 500 MG
     Route: 065

REACTIONS (22)
  - Blood pressure increased [Not Recovered/Not Resolved]
  - Depression [Not Recovered/Not Resolved]
  - Anxiety [Unknown]
  - Product dose omission [Unknown]
  - Cushingoid [Unknown]
  - Intervertebral disc degeneration [Unknown]
  - Injection site injury [Not Recovered/Not Resolved]
  - Glucose tolerance impaired [Unknown]
  - Eye haemorrhage [Unknown]
  - Inflammation [Unknown]
  - Immunosuppression [Unknown]
  - Angina pectoris [Recovering/Resolving]
  - Somnolence [Unknown]
  - Osteoarthritis [Unknown]
  - Stress [Unknown]
  - Cervicitis [Unknown]
  - Muscle spasms [Unknown]
  - Pain in extremity [Unknown]
  - Ventricular hypertrophy [Unknown]
  - Renal impairment [Unknown]
  - Blood parathyroid hormone increased [Unknown]
  - Injection site discolouration [Not Recovered/Not Resolved]

NARRATIVE: CASE EVENT DATE: 20180915
